FAERS Safety Report 21426285 (Version 1)
Quarter: 2022Q4

REPORT INFORMATION
  Report Type: Spontaneous
  Country: US (occurrence: US)
  Receive Date: 20221008
  Receipt Date: 20221008
  Transmission Date: 20230113
  Serious: No
  Sender: FDA-Public Use
  Company Number: US-PURDUE PHARMA-USA-2020-0154201

PATIENT
  Sex: Male

DRUGS (1)
  1. BUTRANS [Suspect]
     Active Substance: BUPRENORPHINE
     Indication: Pain management
     Dosage: 20 MCG/HR, WEEKLY
     Route: 062

REACTIONS (2)
  - Therapeutic product effect decreased [Unknown]
  - Product packaging quantity issue [Unknown]
